FAERS Safety Report 12704524 (Version 2)
Quarter: 2020Q2

REPORT INFORMATION
  Report Type: Spontaneous
  Country: US (occurrence: US)
  Receive Date: 20160831
  Receipt Date: 20200528
  Transmission Date: 20200713
  Serious: No
  Sender: FDA-Public Use
  Company Number: US-SA-2015SA183797

PATIENT
  Age: 75 Year
  Sex: Female

DRUGS (3)
  1. AVAPRO [Suspect]
     Active Substance: IRBESARTAN
     Indication: BLOOD PRESSURE MEASUREMENT
     Dosage: 150 MG,UNK
     Route: 065
     Dates: start: 2005
  2. AVAPRO [Suspect]
     Active Substance: IRBESARTAN
     Dosage: 300 MG,UNK
     Route: 065
  3. AVAPRO [Suspect]
     Active Substance: IRBESARTAN
     Dosage: 0.5 DF, QD
     Route: 065
     Dates: start: 20151108

REACTIONS (4)
  - Blood pressure increased [Not Recovered/Not Resolved]
  - Drug ineffective [Unknown]
  - Weight decreased [Not Recovered/Not Resolved]
  - Product availability issue [Unknown]

NARRATIVE: CASE EVENT DATE: 20151108
